FAERS Safety Report 18912484 (Version 1)
Quarter: 2021Q1

REPORT INFORMATION
  Report Type: Spontaneous
  Country: US (occurrence: US)
  Receive Date: 20210219
  Receipt Date: 20210219
  Transmission Date: 20210420
  Serious: No
  Sender: FDA-Public Use
  Company Number: US-SA-2021SA055665

PATIENT
  Age: 26 Year
  Sex: Female

DRUGS (4)
  1. DROSPIRENONE;ETHINYLESTRADIOL;LEVOMEFOLIC ACID [Concomitant]
     Active Substance: DROSPIRENONE\ETHINYL ESTRADIOL\LEVOMEFOLATE CALCIUM
  2. DUPIXENT [Suspect]
     Active Substance: DUPILUMAB
     Indication: DERMATITIS ATOPIC
     Dosage: 300 MG, QOW
     Route: 058
     Dates: start: 20200918
  3. MESALAMINE DELAYED RELEASE [Concomitant]
     Active Substance: MESALAMINE
  4. XELJANZ [Suspect]
     Active Substance: TOFACITINIB CITRATE

REACTIONS (1)
  - Tachycardia [Unknown]
